FAERS Safety Report 6519046-2 (Version None)
Quarter: 2009Q4

REPORT INFORMATION
  Report Type: 
  Country: None (occurrence: None)
  Receive Date: 20091228
  Receipt Date: 20091125
  Transmission Date: 20100525
  Serious: No
  Sender: FDA-Public Use
  Company Number: US-BAYER-200941272NA

PATIENT
  Age: 76 Year
  Sex: Male

DRUGS (7)
  1. LEVITRA [Suspect]
     Indication: ERECTILE DYSFUNCTION
     Route: 048
     Dates: start: 20090301
  2. SIMVASTATIN [Concomitant]
  3. TRIAMTERENE [Concomitant]
  4. DILTIAZEM [Concomitant]
  5. LISINOPRIL [Concomitant]
  6. ASPIRIN [Concomitant]
  7. FLUNISOLIDE [Concomitant]

REACTIONS (3)
  - DYSPEPSIA [None]
  - HAIR GROWTH ABNORMAL [None]
  - RASH [None]
